FAERS Safety Report 8849403 (Version 3)
Quarter: 2014Q1

REPORT INFORMATION
  Report Type: Report from Study
  Country: DE (occurrence: DE)
  Receive Date: 20121017
  Receipt Date: 20140324
  Transmission Date: 20141002
  Serious: Yes (Death, Hospitalization)
  Sender: FDA-Public Use
  Company Number: DE-ASTRAZENECA-2011SE05693

PATIENT
  Age: 63 Year
  Sex: Female
  Weight: 62 kg

DRUGS (12)
  1. FASLODEX [Suspect]
     Indication: BREAST CANCER
     Route: 030
     Dates: start: 20101104, end: 20110228
  2. ACC [Concomitant]
     Indication: COUGH
     Route: 048
  3. NOVALGIN [Concomitant]
     Indication: PAIN
     Dosage: 20 FOUR TIMES A DAY
     Route: 048
     Dates: start: 20110323
  4. FENTANYL [Concomitant]
     Indication: PAIN
     Route: 050
  5. METOCLOPRAMID [Concomitant]
     Indication: NAUSEA
     Dosage: 20 THREE TIMES A DAY
     Route: 048
     Dates: start: 20110323
  6. SAROTEN [Concomitant]
     Indication: PAIN
     Route: 048
     Dates: start: 20110101
  7. TOREM [Concomitant]
     Indication: DEHYDRATION
     Route: 048
     Dates: start: 20110323
  8. DEXAMETASON [Concomitant]
     Indication: PALLIATIVE CARE
     Route: 048
     Dates: start: 20110101
  9. DEXAMETASON [Concomitant]
     Indication: DYSPNOEA
     Route: 048
     Dates: start: 20110101
  10. BUPRENORPHINE [Concomitant]
     Indication: PAIN
     Dates: start: 20110215
  11. MACROGOL [Concomitant]
     Indication: CONSTIPATION
     Route: 048
     Dates: start: 20110101
  12. PANTOZOL [Concomitant]
     Indication: GASTRITIS
     Route: 048
     Dates: start: 20110101

REACTIONS (6)
  - Musculoskeletal pain [Not Recovered/Not Resolved]
  - Post procedural fistula [Fatal]
  - Pain [Not Recovered/Not Resolved]
  - Malignant pleural effusion [Recovered/Resolved]
  - Back pain [Not Recovered/Not Resolved]
  - Pleural effusion [Fatal]
